FAERS Safety Report 25630503 (Version 1)
Quarter: 2025Q3

REPORT INFORMATION
  Report Type: Spontaneous
  Country: EU (occurrence: EU)
  Receive Date: 20250801
  Receipt Date: 20250801
  Transmission Date: 20251021
  Serious: Yes (Hospitalization)
  Sender: TEVA
  Company Number: EU-DCGMA-25205560

PATIENT
  Age: 7 Year
  Sex: Male
  Weight: 35 kg

DRUGS (14)
  1. METHOTREXATE [Suspect]
     Active Substance: METHOTREXATE
     Indication: Acute lymphocytic leukaemia
     Route: 037
     Dates: start: 20250422, end: 20250422
  2. METHOTREXATE [Suspect]
     Active Substance: METHOTREXATE
     Indication: Acute lymphocytic leukaemia
     Route: 042
     Dates: start: 20250415, end: 20250415
  3. DEXAMETHASONE [Concomitant]
     Active Substance: DEXAMETHASONE
     Indication: Acute lymphocytic leukaemia
     Dosage: 8 MG 3 TIMES DAILY
     Route: 048
     Dates: start: 20250422, end: 20250427
  4. HYDROCORTISONE [Concomitant]
     Active Substance: HYDROCORTISONE
     Indication: Acute lymphocytic leukaemia
     Route: 048
     Dates: start: 20250415, end: 20250427
  5. VINCRISTINE [Concomitant]
     Active Substance: VINCRISTINE
     Indication: Acute lymphocytic leukaemia
     Route: 042
     Dates: start: 20250415, end: 20250426
  6. PHYTONADIONE [Concomitant]
     Active Substance: PHYTONADIONE
     Indication: Product used for unknown indication
     Route: 042
     Dates: start: 20250421, end: 20250423
  7. POTASSIUM CHLORIDE [Concomitant]
     Active Substance: POTASSIUM CHLORIDE
     Indication: Hypokalaemia
     Route: 048
     Dates: start: 20250416, end: 20250418
  8. Cotrimoxal [Concomitant]
     Indication: Product used for unknown indication
     Dosage: 80 MG TWICE DAILY
     Route: 048
     Dates: start: 20250419, end: 20250420
  9. POTASSIUM CHLORIDE [Concomitant]
     Active Substance: POTASSIUM CHLORIDE
     Indication: Hypokalaemia
     Route: 048
     Dates: start: 20250418, end: 20250422
  10. CYTARABINE [Concomitant]
     Active Substance: CYTARABINE
     Indication: Acute lymphocytic leukaemia
     Route: 042
     Dates: start: 20250425, end: 20250426
  11. Levocarnitin [Concomitant]
     Indication: Acute lymphocytic leukaemia
     Route: 048
     Dates: start: 20250414, end: 20250427
  12. CYCLOPHOSPHAMIDE [Concomitant]
     Active Substance: CYCLOPHOSPHAMIDE
     Indication: Acute lymphocytic leukaemia
     Route: 042
     Dates: start: 20250423, end: 20250425
  13. ENALAPRIL [Concomitant]
     Active Substance: ENALAPRIL
     Indication: Acute lymphocytic leukaemia
     Dosage: 7.5 MG TWICE DAILY
     Route: 048
     Dates: start: 20250414, end: 20250427
  14. AMPHOTERICIN B [Concomitant]
     Active Substance: AMPHOTERICIN B
     Indication: Acute lymphocytic leukaemia
     Route: 048
     Dates: start: 20250414, end: 20250427

REACTIONS (5)
  - Hypersensitivity [Recovered/Resolved]
  - Hypokalaemia [Recovered/Resolved]
  - Vomiting [Recovered/Resolved]
  - Nausea [Recovered/Resolved]
  - Rash [Recovered/Resolved]

NARRATIVE: CASE EVENT DATE: 20250401
